FAERS Safety Report 6898682-8 (Version None)
Quarter: 2010Q3

REPORT INFORMATION
  Report Type: 
  Country: None (occurrence: None)
  Receive Date: 20100802
  Receipt Date: 20071116
  Transmission Date: 20110219
  Serious: Yes (Other)
  Sender: FDA-Public Use
  Company Number: US-PFIZER INC-2007081553

PATIENT
  Age: 57 Year
  Sex: Male
  Weight: 61.2 kg

DRUGS (1)
  1. LYRICA [Suspect]
     Indication: EPILEPSY
     Route: 048
     Dates: start: 20051221

REACTIONS (2)
  - NIGHTMARE [None]
  - PARANOIA [None]
